FAERS Safety Report 7552029-2 (Version None)
Quarter: 2011Q2

REPORT INFORMATION
  Report Type: 
  Country: None (occurrence: None)
  Receive Date: 20110616
  Receipt Date: 20110608
  Transmission Date: 20111010
  Serious: Yes (Other)
  Sender: FDA-Public Use
  Company Number: US-US-EMD SERONO, INC.-7064407

PATIENT
  Sex: Female

DRUGS (2)
  1. IRON PILLS [Concomitant]
     Indication: ANAEMIA
  2. REBIF [Suspect]
     Indication: PRODUCT USED FOR UNKNOWN INDICATION
     Route: 058
     Dates: start: 20090416

REACTIONS (1)
  - ANAEMIA [None]
